FAERS Safety Report 17353091 (Version 1)
Quarter: 2020Q1

REPORT INFORMATION
  Report Type: Spontaneous
  Country: GB (occurrence: GB)
  Receive Date: 20200131
  Receipt Date: 20200131
  Transmission Date: 20200409
  Serious: Yes (Other)
  Sender: FDA-Public Use
  Company Number: GB-TEVA-2020-GB-1177094

PATIENT
  Age: 92 Year
  Sex: Female
  Weight: 46 kg

DRUGS (5)
  1. COCODAMOL [Suspect]
     Active Substance: ACETAMINOPHEN\CODEINE PHOSPHATE
     Dosage: 8MG/500MG
     Dates: start: 20190213
  2. LACTULOSE. [Concomitant]
     Active Substance: LACTULOSE
     Dosage: 10-15ML TWICE DAILY
     Dates: start: 20190213
  3. LEVOTHYROXINE. [Concomitant]
     Active Substance: LEVOTHYROXINE
     Dosage: EACH MORNING,1 DF
     Dates: start: 20180320
  4. CASSIA [Concomitant]
     Dosage: AT NIGHT, 1DF
     Dates: start: 20180320, end: 20190213
  5. GAVISCON ADVANCE [Concomitant]
     Active Substance: POTASSIUM BICARBONATE\SODIUM ALGINATE
     Dosage: 5ML - 10ML 4 TIMES/DAY
     Dates: start: 20180320

REACTIONS (1)
  - Confusional state [Recovered/Resolved]

NARRATIVE: CASE EVENT DATE: 20190220
